FAERS Safety Report 6809372-1 (Version None)
Quarter: 2010Q2

REPORT INFORMATION
  Report Type: 
  Country: None (occurrence: None)
  Receive Date: 20100630
  Receipt Date: 20100625
  Transmission Date: 20101027
  Serious: Yes (Other)
  Sender: FDA-Public Use
  Company Number: GB-ASTRAZENECA-2010SE29837

PATIENT
  Age: 82 Year
  Sex: Female

DRUGS (6)
  1. LISINOPRIL [Suspect]
     Route: 048
  2. LISINOPRIL [Suspect]
     Route: 048
  3. BISOPROLOL FUMARATE [Suspect]
  4. CO-AMILOFRUSE [Suspect]
     Dosage: ONCE  A DAY
  5. CO-AMILOFRUSE [Suspect]
  6. ACETYLSALICYLIC ACID [Concomitant]

REACTIONS (4)
  - DIZZINESS [None]
  - FALL [None]
  - HYPOTENSION [None]
  - SYNCOPE [None]
